FAERS Safety Report 11910999 (Version 1)
Quarter: 2016Q1

REPORT INFORMATION
  Report Type: Report from Study
  Country: US (occurrence: US)
  Receive Date: 20160112
  Receipt Date: 20160112
  Transmission Date: 20160526
  Serious: Yes (Hospitalization)
  Sender: FDA-Public Use
  Company Number: US-BAXALTA-2015BLT003712

PATIENT

DRUGS (1)
  1. HUMAN COAGULATION FACTOR VIII (RDNA) [Suspect]
     Active Substance: ANTIHEMOPHILIC FACTOR, HUMAN RECOMBINANT
     Indication: PRODUCT USED FOR UNKNOWN INDICATION
     Dosage: 1250, EVERY 2 DY
     Route: 065

REACTIONS (2)
  - Dizziness [Unknown]
  - Dyspnoea [Unknown]
